FAERS Safety Report 4679496-6 (Version None)
Quarter: 2005Q2

REPORT INFORMATION
  Report Type: 
  Country: None (occurrence: None)
  Receive Date: 20050602
  Receipt Date: 20050303
  Transmission Date: 20051028
  Serious: Yes (Disabling, Other)
  Sender: FDA-Public Use
  Company Number: US-MERCK-0503USA00797

PATIENT
  Age: 31 Year
  Sex: Male
  Weight: 159 kg

DRUGS (45)
  1. VIOXX [Suspect]
     Indication: GOUTY ARTHRITIS
     Route: 048
     Dates: start: 20010601, end: 20030501
  2. VIOXX [Suspect]
     Route: 048
     Dates: start: 20010601, end: 20030501
  3. POTASSIUM (UNSPECIFIED) [Concomitant]
     Route: 065
  4. CELEXA [Concomitant]
     Route: 065
  5. ACETAMINOPHEN AND HYDROCODONE BITARTRATE [Concomitant]
     Route: 065
  6. ALLOPURINOL [Concomitant]
     Route: 065
  7. PRILOSEC [Concomitant]
     Route: 065
  8. WELLBUTRIN [Concomitant]
     Route: 065
  9. FUROSEMIDE [Concomitant]
     Route: 065
  10. COLCHICINE [Concomitant]
     Route: 065
  11. OXYCONTIN [Concomitant]
     Route: 065
  12. CHLORZOXAZONE [Concomitant]
     Route: 065
  13. TRAZODONE HYDROCHLORIDE [Concomitant]
     Route: 065
  14. CEPHALEXIN [Concomitant]
     Route: 065
  15. ZANAFLEX [Concomitant]
     Route: 065
  16. ENDOCET [Concomitant]
     Route: 065
  17. ZAROXOLYN [Concomitant]
     Route: 065
  18. PERCOCET [Concomitant]
     Route: 065
  19. PREDNISONE [Concomitant]
     Route: 065
  20. WARFARIN [Concomitant]
     Route: 065
  21. CLINDAMYCIN [Concomitant]
     Route: 065
  22. ULTRACET [Concomitant]
     Route: 065
  23. [THERAPY UNSPECIFIED] [Concomitant]
     Route: 065
  24. PENICILLIN (UNSPECIFIED) [Concomitant]
     Route: 065
  25. DELTASONE [Concomitant]
     Route: 065
  26. LEVAQUIN [Concomitant]
     Route: 065
  27. ACETAMINOPHEN AND PROPOXYPHENE NAPSYLATE [Concomitant]
     Route: 065
  28. K-DUR 10 [Concomitant]
     Route: 065
  29. INDOMETHACIN [Concomitant]
     Route: 065
  30. ULTRAM [Concomitant]
     Route: 065
  31. BIAXIN XL [Concomitant]
     Route: 065
  32. ALBUTEROL [Concomitant]
     Route: 065
  33. METHYLPREDNISOLONE [Concomitant]
     Route: 065
  34. ERY-TAB [Concomitant]
     Route: 065
  35. ROXICET [Concomitant]
     Route: 065
  36. CHLORINE [Concomitant]
     Route: 065
  37. DURAGESIC-100 [Concomitant]
     Route: 065
  38. ZOLOFT [Concomitant]
     Route: 065
  39. CLARINEX [Concomitant]
     Route: 065
  40. OMEPRAZOLE [Concomitant]
     Route: 065
  41. TIZANIDINE HYDROCHLORIDE [Concomitant]
     Route: 065
  42. [THERAPY UNSPECIFIED] [Concomitant]
     Route: 065
  43. LASIX [Concomitant]
     Route: 065
     Dates: start: 20010101
  44. COUMADIN [Concomitant]
     Route: 065
     Dates: start: 20010101
  45. ASPIRIN [Concomitant]
     Route: 065

REACTIONS (6)
  - CARDIAC DISORDER [None]
  - DEPRESSION [None]
  - HYPERTENSION [None]
  - MYOCARDIAL INFARCTION [None]
  - OBESITY [None]
  - SLEEP APNOEA SYNDROME [None]
